FAERS Safety Report 7821775-5 (Version None)
Quarter: 2011Q4

REPORT INFORMATION
  Report Type: 
  Country: None (occurrence: None)
  Receive Date: 20111018
  Receipt Date: 20110117
  Transmission Date: 20120403
  Serious: No
  Sender: FDA-Public Use
  Company Number: US-ASTRAZENECA-2010SE57848

PATIENT
  Age: 27940 Day
  Sex: Female
  Weight: 77.1 kg

DRUGS (1)
  1. SYMBICORT [Suspect]
     Indication: CHRONIC OBSTRUCTIVE PULMONARY DISEASE
     Dosage: 320 MCG BID
     Route: 055
     Dates: start: 20090101

REACTIONS (2)
  - MALAISE [None]
  - DYSPNOEA [None]
